FAERS Safety Report 5948374-4 (Version None)
Quarter: 2008Q4

REPORT INFORMATION
  Report Type: 
  Country: None (occurrence: None)
  Receive Date: 20081110
  Receipt Date: 20081110
  Transmission Date: 20090506
  Serious: Yes (Other)
  Sender: FDA-Public Use
  Company Number: None

PATIENT
  Age: 33 Year
  Sex: Female
  Weight: 73.9363 kg

DRUGS (1)
  1. NUVARING [Suspect]
     Indication: OVARIAN CYST
     Dosage: 1 RING 1X3WEEKS VAG
     Route: 067
     Dates: start: 20080601, end: 20080920

REACTIONS (4)
  - ANGER [None]
  - DEPRESSION [None]
  - DYSGEUSIA [None]
  - SUICIDAL IDEATION [None]
